FAERS Safety Report 8462382-3 (Version None)
Quarter: 2012Q2

REPORT INFORMATION
  Report Type: 
  Country: None (occurrence: None)
  Receive Date: 20120625
  Receipt Date: 20120619
  Transmission Date: 20120825
  Serious: No
  Sender: FDA-Public Use
  Company Number: US-PFIZER INC-2012147871

PATIENT
  Sex: Female

DRUGS (2)
  1. LYRICA [Concomitant]
     Dosage: UNK
  2. RELPAX [Suspect]
     Indication: HEADACHE
     Dosage: UNK

REACTIONS (2)
  - HEADACHE [None]
  - DRUG INEFFECTIVE [None]
